FAERS Safety Report 7369922-6 (Version None)
Quarter: 2011Q1

REPORT INFORMATION
  Report Type: 
  Country: None (occurrence: None)
  Receive Date: 20110323
  Receipt Date: 20110317
  Transmission Date: 20110831
  Serious: Yes (Life-Threatening, Other)
  Sender: FDA-Public Use
  Company Number: GB-PFIZER INC-2011016981

PATIENT
  Age: 61 Year
  Sex: Male
  Weight: 130 kg

DRUGS (8)
  1. ATENOLOL [Concomitant]
     Indication: ARRHYTHMIA
     Dosage: 50 MG, 1X/DAY
     Route: 050
     Dates: start: 20110107, end: 20110124
  2. OMEPRAZOLE [Concomitant]
  3. NORADRENALINE [Concomitant]
     Indication: HYPOTENSION
     Dosage: 0.06 UG, PER KG PER HOUR
     Route: 042
     Dates: start: 20110123, end: 20110126
  4. LISINOPRIL [Concomitant]
  5. ACTRAPID [Concomitant]
     Indication: BLOOD GLUCOSE INCREASED
     Dosage: 4 - 14 IU / HOUR
     Route: 042
     Dates: start: 20110107, end: 20110205
  6. MEROPENEM [Concomitant]
     Indication: PNEUMONIA
     Dosage: 1 G, 3X/DAY
     Route: 042
     Dates: start: 20110123, end: 20110126
  7. ZYVOX [Suspect]
     Dosage: 600 MG, 2X/DAY
     Route: 042
     Dates: start: 20110123, end: 20110126
  8. NYSTATIN [Concomitant]
     Indication: ORAL CANDIDIASIS
     Dosage: 1 DF, UNK
     Route: 048
     Dates: start: 20110116, end: 20110205

REACTIONS (1)
  - HYPERKALAEMIA [None]
